FAERS Safety Report 8042672-9 (Version None)
Quarter: 2012Q1

REPORT INFORMATION
  Report Type: 
  Country: None (occurrence: None)
  Receive Date: 20120112
  Receipt Date: 20120103
  Transmission Date: 20120608
  Serious: Yes (Disabling, Other)
  Sender: FDA-Public Use
  Company Number: US-MERCK-1105USA00696

PATIENT
  Age: 34 Year
  Sex: Male
  Weight: 79 kg

DRUGS (3)
  1. PROPECIA [Suspect]
     Indication: ALOPECIA
     Route: 048
     Dates: start: 19980101, end: 20070101
  2. PROSCAR [Suspect]
     Indication: ALOPECIA
     Route: 048
     Dates: start: 19980101, end: 20070201
  3. PROSCAR [Suspect]
     Indication: ALOPECIA AREATA
     Route: 048
     Dates: start: 19980101, end: 20070201

REACTIONS (38)
  - WRONG TECHNIQUE IN DRUG USAGE PROCESS [None]
  - DEPRESSION [None]
  - CARDIAC MURMUR [None]
  - HELICOBACTER TEST [None]
  - INTENTIONAL DRUG MISUSE [None]
  - UPPER RESPIRATORY TRACT INFECTION [None]
  - TACHYCARDIA [None]
  - ADRENAL INSUFFICIENCY [None]
  - ALLERGY TO ARTHROPOD STING [None]
  - LIGAMENT RUPTURE [None]
  - LIBIDO DECREASED [None]
  - ABDOMINAL PAIN [None]
  - ARRHYTHMIA SUPRAVENTRICULAR [None]
  - INSOMNIA [None]
  - HYPERTENSION [None]
  - BRONCHITIS [None]
  - ANXIETY [None]
  - HYPOGONADISM MALE [None]
  - NERVE COMPRESSION [None]
  - STRESS [None]
  - POOR QUALITY SLEEP [None]
  - SINUS DISORDER [None]
  - GROWTH HORMONE-PRODUCING PITUITARY TUMOUR [None]
  - DECREASED APPETITE [None]
  - TONSILLAR DISORDER [None]
  - PALPITATIONS [None]
  - OSTEOARTHRITIS [None]
  - SEMEN VOLUME DECREASED [None]
  - SEASONAL ALLERGY [None]
  - ASTHENIA [None]
  - SEXUAL DYSFUNCTION [None]
  - ERECTILE DYSFUNCTION [None]
  - TESTICULAR PAIN [None]
  - PROSTATITIS [None]
  - NAUSEA [None]
  - RHINITIS ALLERGIC [None]
  - SENSORY LOSS [None]
  - NEURITIS [None]
